FAERS Safety Report 7310003-5 (Version None)
Quarter: 2011Q1

REPORT INFORMATION
  Report Type: 
  Country: None (occurrence: None)
  Receive Date: 20110224
  Receipt Date: 20100920
  Transmission Date: 20110831
  Serious: Yes (Hospitalization, Other)
  Sender: FDA-Public Use
  Company Number: US-BAYER-201015633NA

PATIENT
  Sex: Female
  Weight: 59.091 kg

DRUGS (5)
  1. YAZ [Suspect]
     Indication: PRODUCT USED FOR UNKNOWN INDICATION
     Route: 048
     Dates: start: 20070423
  2. ELMIRON [Concomitant]
     Route: 065
  3. YASMIN [Suspect]
     Indication: PRODUCT USED FOR UNKNOWN INDICATION
     Route: 048
     Dates: start: 20070719, end: 20070921
  4. NUVARING [Concomitant]
     Route: 065
     Dates: start: 20070125
  5. FLUOXETINE HCL [Concomitant]
     Route: 065

REACTIONS (6)
  - HYPERCOAGULATION [None]
  - PAIN [None]
  - MENTAL DISORDER [None]
  - PULMONARY EMBOLISM [None]
  - ABDOMINAL PAIN UPPER [None]
  - DYSPNOEA [None]
